FAERS Safety Report 25801755 (Version 1)
Quarter: 2025Q3

REPORT INFORMATION
  Report Type: Spontaneous
  Country: AU (occurrence: AU)
  Receive Date: 20250915
  Receipt Date: 20250915
  Transmission Date: 20251021
  Serious: Yes (Other)
  Sender: MYLAN
  Company Number: AU-MYLANLABS-2025M1077433

PATIENT
  Age: 45 Year
  Sex: Female

DRUGS (5)
  1. REMIFENTANIL [Suspect]
     Active Substance: REMIFENTANIL
     Indication: General anaesthesia
  2. REMIFENTANIL [Suspect]
     Active Substance: REMIFENTANIL
  3. REMIFENTANIL [Suspect]
     Active Substance: REMIFENTANIL
  4. PROPOFOL [Concomitant]
     Active Substance: PROPOFOL
  5. PROPOFOL [Concomitant]
     Active Substance: PROPOFOL

REACTIONS (1)
  - Drug ineffective [Recovered/Resolved]
